FAERS Safety Report 15762583 (Version 2)
Quarter: 2019Q1

REPORT INFORMATION
  Report Type: Spontaneous
  Country: FR (occurrence: FR)
  Receive Date: 20181226
  Receipt Date: 20190111
  Transmission Date: 20190417
  Serious: Yes (Other)
  Sender: FDA-Public Use
  Company Number: FR-PFIZER INC-2018521380

PATIENT
  Age: 60 Year
  Sex: Male
  Weight: 100 kg

DRUGS (15)
  1. ZAMADOL [Suspect]
     Active Substance: TRAMADOL HYDROCHLORIDE
     Dosage: 200 MG, 1X/DAY
     Route: 048
     Dates: end: 20181115
  2. BACTRIM [Suspect]
     Active Substance: SULFAMETHOXAZOLE\TRIMETHOPRIM
     Indication: INFECTION
     Dosage: 1600 MG, UNK
     Route: 048
     Dates: start: 20181108
  3. LAMICTAL [Concomitant]
     Active Substance: LAMOTRIGINE
     Dosage: 1600 MG, 1X/DAY
     Route: 048
  4. EPITOMAX [Concomitant]
     Active Substance: TOPIRAMATE
     Dosage: 300 MG, 1X/DAY
     Route: 048
  5. PANTOPRAZOLE SODIUM. [Concomitant]
     Active Substance: PANTOPRAZOLE SODIUM
     Dosage: 20 MG, 1X/DAY
     Route: 048
  6. URBANYL [Concomitant]
     Active Substance: CLOBAZAM
     Dosage: 40 MG, 1X/DAY
     Route: 048
  7. LOVENOX [Concomitant]
     Active Substance: ENOXAPARIN SODIUM
     Dosage: 9000 IU, 1X/DAY
     Route: 058
  8. LEVOFLOXACIN. [Suspect]
     Active Substance: LEVOFLOXACIN
     Dosage: 750 MG, UNK
     Dates: start: 20180829, end: 20181108
  9. TAZOCILLINE [Suspect]
     Active Substance: PIPERACILLIN SODIUM\TAZOBACTAM SODIUM
     Indication: INFECTION
     Dosage: UNK
     Dates: start: 20180913, end: 20181115
  10. ZAMUDOL [Suspect]
     Active Substance: TRAMADOL HYDROCHLORIDE
     Dosage: 200 MG, 1X/DAY
     Route: 048
     Dates: end: 20181115
  11. AERIUS (DESLORATADINE) [Concomitant]
     Active Substance: DESLORATADINE
     Dosage: 5 MG, 1X/DAY
     Route: 048
  12. ALEPSAL [CAFFEINE;PHENOBARBITAL] [Concomitant]
     Active Substance: CAFFEINE\PHENOBARBITAL
     Dosage: 200 MG, 1X/DAY
     Route: 048
  13. DALACINE [CLINDAMYCIN PALMITATE HYDROCHLORIDE] [Concomitant]
     Active Substance: CLINDAMYCIN PALMITATE HYDROCHLORIDE
     Dosage: 12 G, 1X/DAY
     Dates: start: 20180913, end: 20181018
  14. CUBICIN [Suspect]
     Active Substance: DAPTOMYCIN
     Indication: INFECTION
     Dosage: 2100 MG, 1X/DAY
     Route: 042
     Dates: start: 20181019, end: 20181115
  15. ECONAZOLE ARROW [Concomitant]
     Dosage: 2 (UNIT UNKNOWN), 1X/DAY

REACTIONS (2)
  - Essential tremor [Unknown]
  - Speech disorder [Unknown]

NARRATIVE: CASE EVENT DATE: 201810
